FAERS Safety Report 8740150 (Version 2)
Quarter: 2013Q4

REPORT INFORMATION
  Report Type: Report from Study
  Country: US (occurrence: US)
  Receive Date: 20120823
  Receipt Date: 20131108
  Transmission Date: 20140711
  Serious: Yes (Other)
  Sender: FDA-Public Use
  Company Number: US-009507513-1208USA008205

PATIENT
  Sex: Female

DRUGS (5)
  1. REBETOL [Suspect]
     Indication: HEPATITIS C
     Dosage: UNK
     Route: 048
     Dates: start: 19920807, end: 19930806
  2. REBETOL [Suspect]
     Dosage: UNK
     Route: 048
     Dates: start: 20120621
  3. INTRONA [Suspect]
     Indication: HEPATITIS C
     Dosage: 3 DF, QD
     Route: 058
     Dates: start: 19920807, end: 19930806
  4. VICTRELIS [Suspect]
     Indication: HEPATITIS C
     Dosage: UNK
     Dates: start: 20120720
  5. PEGASYS [Concomitant]
     Indication: HEPATITIS C
     Dosage: UNK
     Dates: start: 20120621

REACTIONS (6)
  - Malignant melanoma [Unknown]
  - Crying [Unknown]
  - Visual impairment [Unknown]
  - Retinal oedema [Unknown]
  - Local swelling [Unknown]
  - Drug ineffective [Unknown]
